FAERS Safety Report 9653213 (Version 3)
Quarter: 2013Q4

REPORT INFORMATION
  Report Type: Report from Study
  Country: CZ (occurrence: CZ)
  Receive Date: 20131029
  Receipt Date: 20131213
  Transmission Date: 20140711
  Serious: Yes (Hospitalization)
  Sender: FDA-Public Use
  Company Number: CZ-GLAXOSMITHKLINE-B0936435A

PATIENT
  Age: 38 Year
  Sex: Female
  Weight: 71 kg

DRUGS (6)
  1. DABRAFENIB [Suspect]
     Indication: METASTATIC MALIGNANT MELANOMA
     Dosage: 150MG TWICE PER DAY
     Route: 048
     Dates: start: 20131004
  2. TRAMETINIB [Suspect]
     Indication: METASTATIC MALIGNANT MELANOMA
     Dosage: 2MG PER DAY
     Route: 048
     Dates: start: 20131004
  3. ORTANOL [Concomitant]
     Indication: PROPHYLAXIS AGAINST GASTROINTESTINAL ULCER
     Dosage: 20MG PER DAY
     Route: 048
     Dates: start: 20130821
  4. CITALOPRAM HYDROBROMIDE [Concomitant]
     Indication: DEPRESSION
     Dosage: 20MG PER DAY
     Route: 048
     Dates: start: 20130828
  5. PARALEN [Concomitant]
     Indication: PYREXIA
     Dosage: 1000MG THREE TIMES PER DAY
     Route: 048
     Dates: start: 20131020, end: 20131023
  6. LEXAURIN [Concomitant]
     Indication: PROPHYLAXIS
     Dosage: 1.5MG TWICE PER DAY
     Route: 048
     Dates: start: 20130828

REACTIONS (4)
  - Diarrhoea [Recovering/Resolving]
  - Mucosal inflammation [Recovering/Resolving]
  - Sepsis [Recovered/Resolved]
  - Gastrointestinal toxicity [Recovered/Resolved]
